FAERS Safety Report 8924085 (Version 1)
Quarter: 2012Q4

REPORT INFORMATION
  Report Type: Spontaneous
  Country: IT (occurrence: None)
  Receive Date: 20121116
  Receipt Date: 20121116
  Transmission Date: 20130627
  Serious: Yes (Hospitalization)
  Sender: FDA-Public Use
  Company Number: 141700

PATIENT
  Age: 22 Year
  Sex: Female

DRUGS (2)
  1. CYTARABINE [Suspect]
  2. DAUNORUBICIN HCL [Suspect]

REACTIONS (6)
  - Posterior reversible encephalopathy syndrome [None]
  - Hypertension [None]
  - Convulsion [None]
  - Vomiting [None]
  - Headache [None]
  - Acute myeloid leukaemia [None]
